FAERS Safety Report 23113777 (Version 3)
Quarter: 2023Q4

REPORT INFORMATION
  Report Type: Spontaneous
  Country: US (occurrence: US)
  Receive Date: 20231027
  Receipt Date: 20231030
  Transmission Date: 20240110
  Serious: No
  Sender: FDA-Public Use
  Company Number: US-OPELLA-2023OHG008820

PATIENT
  Sex: Male

DRUGS (1)
  1. ASPERCREME NOS [Suspect]
     Active Substance: MENTHOL\TROLAMINE SALICYLATE
     Route: 065

REACTIONS (3)
  - Paraesthesia [Unknown]
  - Drug ineffective [Unknown]
  - Product lot number issue [Unknown]
